FAERS Safety Report 17933066 (Version 1)
Quarter: 2020Q2

REPORT INFORMATION
  Report Type: Spontaneous
  Country: CA (occurrence: CA)
  Receive Date: 20200623
  Receipt Date: 20200623
  Transmission Date: 20200714
  Serious: Yes (Hospitalization, Other)
  Sender: FDA-Public Use
  Company Number: CA-PFIZER INC-2020239235

PATIENT
  Age: 7 Decade
  Sex: Female

DRUGS (11)
  1. FUROSEMIDE. [Suspect]
     Active Substance: FUROSEMIDE
     Indication: CARDIAC FAILURE
     Dosage: 20 MG
  2. FLUOROURACIL. [Concomitant]
     Active Substance: FLUOROURACIL
     Indication: HORMONE RECEPTOR POSITIVE BREAST CANCER
     Dosage: UNK
  3. EPLERENONE. [Suspect]
     Active Substance: EPLERENONE
     Indication: CARDIAC FAILURE
     Dosage: 25 MG (1 IN 1 DAY)
  4. EPIRUBICIN [Suspect]
     Active Substance: EPIRUBICIN
     Dosage: UNK
     Route: 042
  5. ENALAPRIL [Suspect]
     Active Substance: ENALAPRIL
     Indication: CARDIAC FAILURE
     Dosage: 5 MG
  6. CYCLOPHOSPHAMIDE. [Concomitant]
     Active Substance: CYCLOPHOSPHAMIDE
     Indication: HORMONE RECEPTOR POSITIVE BREAST CANCER
     Dosage: UNK
  7. TAMOXIFEN [Concomitant]
     Active Substance: TAMOXIFEN
     Indication: HORMONE RECEPTOR POSITIVE BREAST CANCER
     Dosage: UNK
  8. CARVEDILOL. [Suspect]
     Active Substance: CARVEDILOL
     Dosage: 25 MG(12.5 MG 2 IN 1 DAY)
  9. CARVEDILOL. [Suspect]
     Active Substance: CARVEDILOL
     Dosage: 25 MG(12.5 MG 2 IN 1 DAY)
  10. SPIRONOLACTONE. [Suspect]
     Active Substance: SPIRONOLACTONE
     Indication: CARDIAC FAILURE
     Dosage: 25 MG, 1 IN 1 D
  11. LETROZOLE. [Concomitant]
     Active Substance: LETROZOLE
     Indication: HORMONE RECEPTOR POSITIVE BREAST CANCER
     Dosage: UNK

REACTIONS (8)
  - Hypovolaemia [Unknown]
  - Left ventricular dilatation [Unknown]
  - Cardiac failure congestive [Unknown]
  - Cardiomyopathy [Unknown]
  - Hypotension [Unknown]
  - Drug ineffective [Unknown]
  - Pulmonary arterial pressure increased [Unknown]
  - Oedema peripheral [Unknown]
